FAERS Safety Report 19933855 (Version 5)
Quarter: 2021Q4

REPORT INFORMATION
  Report Type: Spontaneous
  Country: RU (occurrence: RU)
  Receive Date: 20211008
  Receipt Date: 20211119
  Transmission Date: 20220303
  Serious: Yes (Hospitalization, Other)
  Sender: FDA-Public Use
  Company Number: RU-BIOGEN-2021BI01054589

PATIENT
  Age: 40 Year
  Sex: Female

DRUGS (6)
  1. TYSABRI [Suspect]
     Active Substance: NATALIZUMAB
     Indication: Multiple sclerosis
     Dosage: RECEIVED A TOTAL OF 30 INFUSIONS
     Route: 065
     Dates: end: 20210330
  2. COVID-19 VACCINE NOS [Suspect]
     Active Substance: COVID-19 VACCINE NOS
     Indication: COVID-19 prophylaxis
     Dosage: 1ST DOSE
     Route: 065
     Dates: start: 2021, end: 2021
  3. COVID-19 VACCINE NOS [Suspect]
     Active Substance: COVID-19 VACCINE NOS
     Dosage: 2ND DOSE
     Route: 065
     Dates: start: 20210805, end: 20210805
  4. OCRELIZUMAB [Concomitant]
     Active Substance: OCRELIZUMAB
     Indication: Multiple sclerosis
     Route: 065
     Dates: start: 202109
  5. DEXAMETHASONE [Concomitant]
     Active Substance: DEXAMETHASONE
     Indication: Product used for unknown indication
     Route: 065
  6. DEXAMETHASONE [Concomitant]
     Active Substance: DEXAMETHASONE
     Route: 065

REACTIONS (2)
  - Progressive multifocal leukoencephalopathy [Unknown]
  - Vaccination complication [Unknown]

NARRATIVE: CASE EVENT DATE: 20210101
